FAERS Safety Report 15241216 (Version 1)
Quarter: 2018Q3

REPORT INFORMATION
  Report Type: Spontaneous
  Country: US (occurrence: US)
  Receive Date: 20180711
  Receipt Date: 20180711
  Transmission Date: 20181010
  Serious: Yes (Disabling)
  Sender: FDA-Public Use
  Company Number: None

PATIENT
  Age: 33 Year
  Sex: Female
  Weight: 67.5 kg

DRUGS (1)
  1. MIRENA [Suspect]
     Active Substance: LEVONORGESTREL
     Indication: CONTRACEPTION
     Dosage: ?          QUANTITY:1 IMPLANT;OTHER FREQUENCY:1 EVERY 5 YEARS;?
     Route: 067
     Dates: start: 20160102, end: 20180711

REACTIONS (3)
  - Migraine [None]
  - Vision blurred [None]
  - Device related infection [None]

NARRATIVE: CASE EVENT DATE: 20160601
